FAERS Safety Report 12569433 (Version 2)
Quarter: 2016Q3

REPORT INFORMATION
  Report Type: Spontaneous
  Country: US (occurrence: US)
  Receive Date: 20160719
  Receipt Date: 20160811
  Transmission Date: 20161109
  Serious: No
  Sender: FDA-Public Use
  Company Number: US-PFIZER INC-2016335646

PATIENT
  Age: 44 Year
  Sex: Male
  Weight: 93 kg

DRUGS (9)
  1. NEURONTIN [Concomitant]
     Active Substance: GABAPENTIN
     Dosage: 100 MG, 1X/DAY (AT BEDTIME)
     Route: 048
  2. VALTREX [Concomitant]
     Active Substance: VALACYCLOVIR HYDROCHLORIDE
     Dosage: 2000 MG, UNK (1000 MG; TAKE 2 TABLETS ON DAY 1 AND THEN 1 TAB QDAY X 4 DAYS)
  3. VIAGRA [Suspect]
     Active Substance: SILDENAFIL CITRATE
     Indication: SEXUAL DYSFUNCTION
     Dosage: 50 MG, SINGLE
     Route: 048
  4. LOTENSIN [Concomitant]
     Active Substance: BENAZEPRIL HYDROCHLORIDE
     Dosage: 20 MG, DAILY
     Route: 048
  5. AMARYL [Concomitant]
     Active Substance: GLIMEPIRIDE
     Dosage: 4 MG, 1X/DAY (EVERY MORNING BEFORE BREAKFAST)
     Route: 048
  6. VALTREX [Concomitant]
     Active Substance: VALACYCLOVIR HYDROCHLORIDE
     Dosage: 1000 MG, DAILY (THEN 1 TAB QDAY X 4 DAYS)
  7. VIAGRA [Suspect]
     Active Substance: SILDENAFIL CITRATE
     Indication: ERECTILE DYSFUNCTION
     Dosage: 100 MG, AS NEEDED
     Route: 048
     Dates: start: 20160708
  8. LEVEMIR [Concomitant]
     Active Substance: INSULIN DETEMIR
     Dosage: 35 IU, 2X/DAY, (100 UNIT/ML INJECTION)
     Route: 058
  9. ZYLOPRIM [Concomitant]
     Active Substance: ALLOPURINOL
     Dosage: 300 MG, DAILY
     Route: 048

REACTIONS (1)
  - Drug ineffective [Unknown]

NARRATIVE: CASE EVENT DATE: 20160703
